FAERS Safety Report 9160501 (Version 1)
Quarter: 2013Q1

REPORT INFORMATION
  Report Type: Report from Study
  Country: DE (occurrence: DE)
  Receive Date: 20130313
  Receipt Date: 20130313
  Transmission Date: 20140127
  Serious: Yes (Hospitalization)
  Sender: FDA-Public Use
  Company Number: DE-AMGEN-DEUCT2013016649

PATIENT
  Age: 69 Year
  Sex: Male

DRUGS (2)
  1. ETANERCEPT [Suspect]
     Indication: PRODUCT USED FOR UNKNOWN INDICATION
     Dosage: 50 MG, UNK
     Dates: start: 201203, end: 20120712
  2. ETANERCEPT [Suspect]
     Dosage: 50 MG, UNK
     Dates: start: 20120726

REACTIONS (2)
  - Pneumonia [Recovered/Resolved]
  - Escherichia bacteraemia [Recovered/Resolved]
